FAERS Safety Report 4951400-2 (Version None)
Quarter: 2006Q1

REPORT INFORMATION
  Report Type: 
  Country: None (occurrence: None)
  Receive Date: 20060323
  Receipt Date: 20060314
  Transmission Date: 20060701
  Serious: Yes (Hospitalization)
  Sender: FDA-Public Use
  Company Number: US-JNJFOC-20060304181

PATIENT
  Age: 52 Year
  Sex: Male
  Weight: 86.18 kg

DRUGS (4)
  1. DURAGESIC-100 [Suspect]
     Route: 062
  2. DURAGESIC-100 [Suspect]
     Route: 062
  3. PREDNISONE [Concomitant]
  4. OXYCODONE [Concomitant]
     Indication: BREAKTHROUGH PAIN

REACTIONS (4)
  - DIVERTICULITIS [None]
  - DRUG WITHDRAWAL SYNDROME [None]
  - LARGE INTESTINE PERFORATION [None]
  - THERAPEUTIC RESPONSE DECREASED [None]
